FAERS Safety Report 15526133 (Version 1)
Quarter: 2018Q4

REPORT INFORMATION
  Report Type: Spontaneous
  Country: US (occurrence: US)
  Receive Date: 20181018
  Receipt Date: 20181018
  Transmission Date: 20190205
  Serious: No
  Sender: FDA-Public Use
  Company Number: US-TEVA-381308USA

PATIENT
  Age: 57 Year
  Sex: Female

DRUGS (2)
  1. PROVIGIL [Suspect]
     Active Substance: MODAFINIL
     Indication: SLEEP APNOEA SYNDROME
     Dosage: 200 MILLIGRAM DAILY;
  2. PROVIGIL [Suspect]
     Active Substance: MODAFINIL
     Dosage: 200 MG IN THE MORNING AND 100 MG IN THE AFTERNOON

REACTIONS (3)
  - Somnolence [Unknown]
  - Drug ineffective [Unknown]
  - Asthenia [Unknown]
